FAERS Safety Report 9256478 (Version 4)
Quarter: 2013Q2

REPORT INFORMATION
  Report Type: Report from Study
  Country: US (occurrence: US)
  Receive Date: 20130426
  Receipt Date: 20130603
  Transmission Date: 20140414
  Serious: Yes (Hospitalization)
  Sender: FDA-Public Use
  Company Number: US-BIOGENIDEC-2013BI035306

PATIENT
  Age: 41 Year
  Sex: Male

DRUGS (9)
  1. TYSABRI [Suspect]
     Indication: CROHN^S DISEASE
     Route: 042
     Dates: start: 20090327, end: 20130409
  2. PREDNISONE [Concomitant]
     Indication: CROHN^S DISEASE
     Route: 048
     Dates: start: 20130314
  3. PREDNISONE [Concomitant]
     Indication: CROHN^S DISEASE
     Route: 048
     Dates: start: 20130423
  4. DAYQUIL [Concomitant]
     Indication: COUGH
     Route: 048
     Dates: start: 20130317
  5. ZOLOFT [Concomitant]
     Indication: DEPRESSION
     Route: 048
  6. OXYCODONE [Concomitant]
     Indication: CROHN^S DISEASE
     Route: 048
     Dates: start: 20121210
  7. OXYCODONE [Concomitant]
     Indication: PAIN
     Route: 048
     Dates: start: 20121210
  8. OXYCODONE [Concomitant]
     Indication: CROHN^S DISEASE
     Route: 048
     Dates: start: 201304
  9. OXYCODONE [Concomitant]
     Indication: PAIN
     Route: 048
     Dates: start: 201304

REACTIONS (3)
  - Gastroenteritis [Recovered/Resolved]
  - Crohn^s disease [Recovered/Resolved]
  - Dehydration [Recovered/Resolved]
